FAERS Safety Report 7259543-8 (Version None)
Quarter: 2011Q1

REPORT INFORMATION
  Report Type: 
  Country: None (occurrence: None)
  Receive Date: 20110130
  Receipt Date: 20101111
  Transmission Date: 20110831
  Serious: No
  Sender: FDA-Public Use
  Company Number: US-ABBOTT-09P-163-0582138-00

PATIENT
  Sex: Female
  Weight: 70.824 kg

DRUGS (6)
  1. TUMS [Concomitant]
     Indication: PREGNANCY
     Route: 048
     Dates: start: 20081216
  2. GENERIC CLARITIN [Concomitant]
     Indication: HYPERSENSITIVITY
     Route: 048
  3. HUMIRA [Suspect]
     Indication: CROHN'S DISEASE
     Route: 058
     Dates: start: 20090301, end: 20090701
  4. PRENATAL VITAMINS [Concomitant]
     Indication: PREGNANCY
     Route: 048
     Dates: start: 20081216
  5. SYMBICORT [Concomitant]
     Indication: ASTHMA
  6. HUMIRA [Suspect]
     Route: 058
     Dates: start: 20091117

REACTIONS (5)
  - TOOTHACHE [None]
  - DENTAL CARIES [None]
  - POSTOPERATIVE WOUND COMPLICATION [None]
  - IMPAIRED HEALING [None]
  - CROHN'S DISEASE [None]
